FAERS Safety Report 9831529 (Version 2)
Quarter: 2014Q2

REPORT INFORMATION
  Report Type: Report from Study
  Country: UY (occurrence: UY)
  Receive Date: 20140121
  Receipt Date: 20140514
  Transmission Date: 20141212
  Serious: Yes (Hospitalization)
  Sender: FDA-Public Use
  Company Number: UY-ROCHE-1334939

PATIENT
  Age: 19 Year
  Sex: Female

DRUGS (1)
  1. PULMOZYME [Suspect]
     Indication: CYSTIC FIBROSIS
     Route: 055

REACTIONS (2)
  - Respiratory tract infection [Not Recovered/Not Resolved]
  - Cholelithiasis [Not Recovered/Not Resolved]
